FAERS Safety Report 25560402 (Version 1)
Quarter: 2025Q3

REPORT INFORMATION
  Report Type: Spontaneous
  Country: US (occurrence: US)
  Receive Date: 20250715
  Receipt Date: 20250715
  Transmission Date: 20251021
  Serious: No
  Sender: NOVO NORDISK
  Company Number: US-NOVOPROD-1408573

PATIENT
  Age: 55 Year
  Sex: Male

DRUGS (9)
  1. OZEMPIC [Suspect]
     Active Substance: SEMAGLUTIDE
     Indication: Type 2 diabetes mellitus
     Route: 058
     Dates: start: 20250319
  2. JARDIANCE [Concomitant]
     Active Substance: EMPAGLIFLOZIN
     Indication: Visual impairment
  3. JARDIANCE [Concomitant]
     Active Substance: EMPAGLIFLOZIN
     Indication: Type 2 diabetes mellitus
     Route: 048
     Dates: start: 20250319
  4. VITAMIN D2 [Concomitant]
     Active Substance: ERGOCALCIFEROL
     Indication: Type 2 diabetes mellitus
     Dosage: 40 MG, QW
     Route: 048
     Dates: start: 20250319
  5. VITAMIN D2 [Concomitant]
     Active Substance: ERGOCALCIFEROL
     Indication: Visual impairment
  6. ATORVASTATIN [Concomitant]
     Active Substance: ATORVASTATIN
     Indication: Type 2 diabetes mellitus
     Dosage: 40 MG, QW
     Route: 048
     Dates: start: 20250319
  7. ATORVASTATIN [Concomitant]
     Active Substance: ATORVASTATIN
     Indication: Visual impairment
  8. ENALAPRIL [Concomitant]
     Active Substance: ENALAPRIL
     Indication: Type 2 diabetes mellitus
     Dosage: 5 MG, QD
  9. ENALAPRIL [Concomitant]
     Active Substance: ENALAPRIL
     Indication: Visual impairment

REACTIONS (2)
  - Visual impairment [Not Recovered/Not Resolved]
  - Wrong technique in product usage process [Unknown]

NARRATIVE: CASE EVENT DATE: 20250321
